FAERS Safety Report 13341864 (Version 1)
Quarter: 2017Q1

REPORT INFORMATION
  Report Type: Spontaneous
  Country: US (occurrence: US)
  Receive Date: 20170316
  Receipt Date: 20170316
  Transmission Date: 20170428
  Serious: No
  Sender: FDA-Public Use
  Company Number: US-009507513-1702USA010703

PATIENT
  Sex: Female

DRUGS (2)
  1. KEYTRUDA [Suspect]
     Active Substance: PEMBROLIZUMAB
     Indication: LUNG SQUAMOUS CELL CARCINOMA RECURRENT
     Dosage: 2 MG/KG, FOR 21 DAYS
     Route: 042
  2. PEGYLATED RECOMBINANT HUMAN INTERLEUKIN-10 [Concomitant]
     Indication: LUNG SQUAMOUS CELL CARCINOMA RECURRENT
     Dosage: 10 MICROGRAM PER KILOGRAM, ON DAYS 1 THROUGH 14 OF THE 21-DAY CYCLE
     Route: 058

REACTIONS (1)
  - Lichen planus [Recovering/Resolving]
